FAERS Safety Report 7402209-1 (Version None)
Quarter: 2011Q2

REPORT INFORMATION
  Report Type: 
  Country: None (occurrence: None)
  Receive Date: 20110401
  Receipt Date: 20110316
  Transmission Date: 20111010
  Serious: Yes (Hospitalization)
  Sender: FDA-Public Use
  Company Number: THQ2011A01354

PATIENT
  Age: 58 Year
  Sex: Female

DRUGS (7)
  1. INSULIN GLARGINE, RECOMBINANT (INSULIN GLARGINE) [Concomitant]
  2. METFORMIN HCL [Concomitant]
  3. FLOTACOR (ALL OTHER THERAPEUTIC PRODUCTS) [Concomitant]
  4. ACTOS [Suspect]
     Indication: BLOOD MAGNESIUM DECREASED
     Dosage: 30 MG (30 MG,1 IN 24 HR) PER ORAL
     Route: 048
  5. ACTOS [Suspect]
     Indication: DIABETES MELLITUS
     Dosage: 30 MG (30 MG,1 IN 24 HR) PER ORAL
     Route: 048
  6. (ACETYLSALICYLIC ACID) (ACETYLSALICYLIC ACID) [Concomitant]
  7. ENALAPRIL MALEATE [Concomitant]

REACTIONS (3)
  - ATRIAL FIBRILLATION [None]
  - BLOOD MAGNESIUM DECREASED [None]
  - ATRIAL FLUTTER [None]
